FAERS Safety Report 8176904-3 (Version None)
Quarter: 2012Q1

REPORT INFORMATION
  Report Type: 
  Country: None (occurrence: None)
  Receive Date: 20120301
  Receipt Date: 20120222
  Transmission Date: 20120608
  Serious: Yes (Hospitalization)
  Sender: FDA-Public Use
  Company Number: CH-B.I. PHARMACEUTICALS,INC./RIDGEFIELD-2012-EU-01128GD

PATIENT
  Age: 77 Year
  Sex: Female

DRUGS (2)
  1. CLONIDINE [Suspect]
     Indication: BACK PAIN
     Route: 037
  2. CLONIDINE [Suspect]
     Dosage: ESTIMATED DOSE OF 22 MG LEAKED IN THE SURROUNDING TISSUE DURING PUMP REFILL

REACTIONS (11)
  - DYSARTHRIA [None]
  - DRUG ADMINISTERED AT INAPPROPRIATE SITE [None]
  - ACUTE PULMONARY OEDEMA [None]
  - HYPERTENSIVE CRISIS [None]
  - ACCIDENTAL OVERDOSE [None]
  - DYSPNOEA [None]
  - CONFUSIONAL STATE [None]
  - HYPERTENSION [None]
  - LEFT VENTRICULAR FAILURE [None]
  - HYPOTENSION [None]
  - HYPERHIDROSIS [None]
